FAERS Safety Report 13013059 (Version 1)
Quarter: 2016Q4

REPORT INFORMATION
  Report Type: Spontaneous
  Country: AU (occurrence: AU)
  Receive Date: 20161209
  Receipt Date: 20161209
  Transmission Date: 20170207
  Serious: Yes (Other)
  Sender: FDA-Public Use
  Company Number: AU-009507513-1612AUS002073

PATIENT
  Sex: Female

DRUGS (4)
  1. ELOCON [Suspect]
     Active Substance: MOMETASONE FUROATE
     Dosage: UNK
     Route: 061
     Dates: start: 20140215, end: 20160415
  2. HYDROCORTISONE. [Suspect]
     Active Substance: HYDROCORTISONE
     Dosage: UNK
     Route: 061
     Dates: start: 20140101, end: 20160415
  3. DIPROSONE [Suspect]
     Active Substance: BETAMETHASONE DIPROPIONATE
     Dosage: UNK
     Route: 061
     Dates: start: 20140215, end: 20160415
  4. PREDNISONE. [Suspect]
     Active Substance: PREDNISONE
     Dosage: UNK
     Route: 048
     Dates: start: 20140615, end: 20160415

REACTIONS (1)
  - Steroid withdrawal syndrome [Not Recovered/Not Resolved]
